FAERS Safety Report 20745258 (Version 1)
Quarter: 2022Q2

REPORT INFORMATION
  Report Type: Spontaneous
  Country: US (occurrence: None)
  Receive Date: 20220422
  Receipt Date: 20220422
  Transmission Date: 20220720
  Serious: Yes (Disabling)
  Sender: FDA-Public Use
  Company Number: None

PATIENT
  Age: 50 Year
  Sex: Female
  Weight: 116.1 kg

DRUGS (1)
  1. DOXEPIN [Suspect]
     Active Substance: DOXEPIN
     Indication: Insomnia

REACTIONS (7)
  - Tongue disorder [None]
  - Tongue eruption [None]
  - Trismus [None]
  - Tongue biting [None]
  - Mouth haemorrhage [None]
  - Tongue haemorrhage [None]
  - Mouth injury [None]

NARRATIVE: CASE EVENT DATE: 20211201
